FAERS Safety Report 4825260-4 (Version None)
Quarter: 2005Q4

REPORT INFORMATION
  Report Type: 
  Country: None (occurrence: None)
  Receive Date: 20051109
  Receipt Date: 20051028
  Transmission Date: 20060501
  Serious: Yes (Hospitalization)
  Sender: FDA-Public Use
  Company Number: 2005136419

PATIENT
  Age: 29 Year
  Sex: Female
  Weight: 58 kg

DRUGS (4)
  1. SALAZOPYRINE (SULFASALAZINE) [Suspect]
     Indication: ANKYLOSING SPONDYLITIS
     Dosage: 3 GRAM (500 MG, 3 IN 1 D), ORAL
     Route: 048
     Dates: start: 20050308, end: 20050927
  2. ATORVASTATIN CALCIUM [Concomitant]
  3. PIROXICAM [Concomitant]
  4. ESOMEPRAZOLE MAGNESIUM (ESOMEPRAZOLE MAGNESIUM) [Concomitant]

REACTIONS (2)
  - BREAST ADENOMA [None]
  - MASTITIS [None]
